FAERS Safety Report 4756891-8 (Version None)
Quarter: 2005Q3

REPORT INFORMATION
  Report Type: 
  Country: None (occurrence: None)
  Receive Date: 20050830
  Receipt Date: 20050705
  Transmission Date: 20060218
  Serious: No
  Sender: FDA-Public Use
  Company Number: US-GLAXOSMITHKLINE-A0565462A

PATIENT
  Age: 75 Year
  Sex: Male
  Weight: 74.5 kg

DRUGS (2)
  1. AVODART [Suspect]
     Indication: DRUG USE FOR UNKNOWN INDICATION
     Route: 048
     Dates: start: 20030426
  2. FLOMAX [Concomitant]
     Indication: DRUG USE FOR UNKNOWN INDICATION
     Route: 048
     Dates: start: 20050501

REACTIONS (4)
  - DRUG INEFFECTIVE [None]
  - HAEMATOSPERMIA [None]
  - PROSTATIC SPECIFIC ANTIGEN DECREASED [None]
  - URINE FLOW DECREASED [None]
